FAERS Safety Report 25699059 (Version 1)
Quarter: 2025Q3

REPORT INFORMATION
  Report Type: Report from Study
  Country: US (occurrence: US)
  Receive Date: 20250819
  Receipt Date: 20250819
  Transmission Date: 20251020
  Serious: Yes (Other)
  Sender: ABBVIE
  Company Number: US-ABBVIE-5915038

PATIENT
  Age: 73 Year
  Sex: Male
  Weight: 103.41 kg

DRUGS (1)
  1. CREON [Suspect]
     Active Substance: PANCRELIPASE AMYLASE\PANCRELIPASE LIPASE\PANCRELIPASE PROTEASE
     Indication: Diarrhoea
     Dosage: DOSE TEXT: 1-2 CAPS
     Route: 048
     Dates: start: 202403

REACTIONS (5)
  - Knee arthroplasty [Recovered/Resolved]
  - COVID-19 [Recovered/Resolved]
  - Off label use [Recovering/Resolving]
  - Lyme disease [Recovered/Resolved]
  - Lyme disease [Recovered/Resolved]

NARRATIVE: CASE EVENT DATE: 20240101
